FAERS Safety Report 18648246 (Version 1)
Quarter: 2020Q4

REPORT INFORMATION
  Report Type: Spontaneous
  Country: DK (occurrence: DK)
  Receive Date: 20201222
  Receipt Date: 20201222
  Transmission Date: 20210114
  Serious: Yes (Hospitalization)
  Sender: FDA-Public Use
  Company Number: DK-BAUSCH-BL-2020-036550

PATIENT
  Age: 70 Year
  Sex: Male
  Weight: 76 kg

DRUGS (3)
  1. DEXAMETHASONE. [Suspect]
     Active Substance: DEXAMETHASONE
     Indication: PLASMA CELL MYELOMA
     Dosage: CYCLE 64
     Route: 048
     Dates: start: 20151003, end: 20201008
  2. DICILLIN [Concomitant]
     Active Substance: DICLOXACILLIN SODIUM
     Indication: ERYSIPELAS
     Route: 065
     Dates: start: 20201014
  3. LENALIDOMIDE [Suspect]
     Active Substance: LENALIDOMIDE
     Indication: PLASMA CELL MYELOMA
     Dosage: 10 MILLIGRAM
     Route: 048

REACTIONS (2)
  - Abscess [Not Recovered/Not Resolved]
  - Nocardia sepsis [Not Recovered/Not Resolved]

NARRATIVE: CASE EVENT DATE: 20201021
